FAERS Safety Report 4959567-7 (Version None)
Quarter: 2006Q1

REPORT INFORMATION
  Report Type: 
  Country: None (occurrence: None)
  Receive Date: 20060331
  Receipt Date: 20050309
  Transmission Date: 20060701
  Serious: Yes (Hospitalization, Other)
  Sender: FDA-Public Use
  Company Number: US-MERCK-0503USA01673

PATIENT
  Age: 61 Year
  Sex: Male
  Weight: 84 kg

DRUGS (2)
  1. VIOXX [Suspect]
     Indication: MYALGIA
     Route: 048
     Dates: start: 20000801, end: 20040901
  2. VIOXX [Suspect]
     Indication: ARTHRALGIA
     Route: 048
     Dates: start: 20000801, end: 20040901

REACTIONS (15)
  - ADVERSE EVENT [None]
  - ANXIETY [None]
  - CARDIOVASCULAR DISORDER [None]
  - CEREBROVASCULAR ACCIDENT [None]
  - CONDITION AGGRAVATED [None]
  - CONVULSION [None]
  - DIPLOPIA [None]
  - DRUG ADMINISTRATION ERROR [None]
  - DYSPNOEA [None]
  - HEART RATE IRREGULAR [None]
  - INFECTION [None]
  - SPONDYLITIS [None]
  - SURGERY [None]
  - SYNCOPE [None]
  - TRIGGER FINGER [None]
